FAERS Safety Report 21141998 (Version 4)
Quarter: 2022Q4

REPORT INFORMATION
  Report Type: Spontaneous
  Country: RO (occurrence: RO)
  Receive Date: 20220728
  Receipt Date: 20221005
  Transmission Date: 20230113
  Serious: Yes (Hospitalization, Other)
  Sender: FDA-Public Use
  Company Number: RO-MEDO2008-L202207050

PATIENT
  Age: 12 Year
  Sex: Female

DRUGS (5)
  1. PANTOPRAZOLE [Suspect]
     Active Substance: PANTOPRAZOLE
     Dosage: UNK
     Route: 065
  2. CEFTRIAXONE SODIUM [Suspect]
     Active Substance: CEFTRIAXONE SODIUM
     Indication: Antibiotic prophylaxis
     Dosage: 100 MILLIGRAM/KILOGRAM, QD
     Route: 065
  3. ESOMEPRAZOLE SODIUM [Suspect]
     Active Substance: ESOMEPRAZOLE SODIUM
     Indication: Oesophagitis
     Dosage: UNK
     Route: 065
  4. OCTREOTIDE [Concomitant]
     Active Substance: OCTREOTIDE
     Indication: Anaemia
     Dosage: 2 MICROGRAM/KILOGRAM
  5. OCTREOTIDE [Concomitant]
     Active Substance: OCTREOTIDE
     Dosage: 2 MILLIGRAM/KILOGRAM, BID

REACTIONS (2)
  - Cholelithiasis [Unknown]
  - Thrombocytopenia [Unknown]
